FAERS Safety Report 7206718-X (Version None)
Quarter: 2011Q1

REPORT INFORMATION
  Report Type: 
  Country: None (occurrence: None)
  Receive Date: 20110103
  Receipt Date: 20101228
  Transmission Date: 20110831
  Serious: Yes (Hospitalization)
  Sender: FDA-Public Use
  Company Number: JP-JNJFOC-20100808477

PATIENT
  Sex: Male

DRUGS (10)
  1. MEROPENEM [Suspect]
     Route: 041
  2. ALFAROL [Concomitant]
     Indication: ILL-DEFINED DISORDER
     Route: 048
  3. LANSOPRAZOLE [Suspect]
     Indication: ILL-DEFINED DISORDER
     Route: 065
  4. CALTAN [Concomitant]
     Indication: ILL-DEFINED DISORDER
     Route: 048
  5. RENAGEL [Concomitant]
     Indication: ILL-DEFINED DISORDER
     Route: 048
  6. CRAVIT [Suspect]
     Indication: LIVER ABSCESS
     Route: 048
  7. ALESION [Concomitant]
     Indication: ILL-DEFINED DISORDER
     Route: 048
  8. ZYLORIC [Suspect]
     Indication: ILL-DEFINED DISORDER
     Route: 048
  9. MEROPENEM [Suspect]
     Indication: LIVER ABSCESS
     Route: 041
  10. MEROPENEM [Suspect]
     Route: 041

REACTIONS (6)
  - STEVENS-JOHNSON SYNDROME [None]
  - ALANINE AMINOTRANSFERASE INCREASED [None]
  - DRUG ERUPTION [None]
  - ANAEMIA [None]
  - DUODENAL ULCER HAEMORRHAGE [None]
  - LIVER ABSCESS [None]
